FAERS Safety Report 7760312-0 (Version None)
Quarter: 2011Q3

REPORT INFORMATION
  Report Type: 
  Country: None (occurrence: None)
  Receive Date: 20110919
  Receipt Date: 20110908
  Transmission Date: 20111222
  Serious: Yes (Hospitalization)
  Sender: FDA-Public Use
  Company Number: US-JNJFOC-20110206619

PATIENT
  Sex: Female
  Weight: 68.04 kg

DRUGS (6)
  1. INFLIXIMAB, RECOMBINANT [Suspect]
     Indication: CROHN'S DISEASE
     Route: 042
     Dates: start: 20080530
  2. CERTOLIZUMAB [Concomitant]
     Indication: CROHN'S DISEASE
     Route: 065
     Dates: end: 20101008
  3. INFLIXIMAB, RECOMBINANT [Suspect]
     Route: 042
     Dates: start: 20071203, end: 20080304
  4. INFLIXIMAB, RECOMBINANT [Suspect]
     Route: 042
     Dates: start: 20080415, end: 20080415
  5. PREDNISONE [Concomitant]
     Route: 065
  6. INFLIXIMAB, RECOMBINANT [Suspect]
     Route: 042
     Dates: start: 20020311, end: 20071022

REACTIONS (3)
  - ILEAL PERFORATION [None]
  - CROHN'S DISEASE [None]
  - PNEUMONIA [None]
